FAERS Safety Report 14167594 (Version 2)
Quarter: 2017Q4

REPORT INFORMATION
  Report Type: Spontaneous
  Country: BR (occurrence: BR)
  Receive Date: 20171107
  Receipt Date: 20171108
  Transmission Date: 20180321
  Serious: Yes (Disabling)
  Sender: FDA-Public Use
  Company Number: BR-TEVA-823036ROM

PATIENT
  Age: 67 Year
  Sex: Female
  Weight: 51.3 kg

DRUGS (7)
  1. ESTREVA [Suspect]
     Active Substance: ESTRADIOL
     Indication: VULVOVAGINAL DRYNESS
  2. ESTREVA [Suspect]
     Active Substance: ESTRADIOL
     Indication: OSTEOPENIA
  3. DIOVAN [Concomitant]
     Active Substance: VALSARTAN
     Indication: HYPERTENSION
     Dosage: 80 MILLIGRAM DAILY;
     Dates: start: 2016
  4. OSCAL D [Concomitant]
     Active Substance: CALCIUM CARBONATE\CHOLECALCIFEROL
     Indication: OSTEOPENIA
     Dates: start: 201707
  5. ACLASTA [Concomitant]
     Active Substance: ZOLEDRONIC ACID
     Indication: OSTEOPENIA
  6. ESTREVA [Suspect]
     Active Substance: ESTRADIOL
     Indication: HOT FLUSH
     Dosage: 03 PUMPS 03 TIMES PER WEEK; 2 PUMPS ONCE A DAT AT NIGHT TWICE A WEEK
     Route: 062
     Dates: start: 2009
  7. PROGESTERONE. [Concomitant]
     Active Substance: PROGESTERONE
     Dosage: 100 MILLIGRAM DAILY;
     Dates: start: 2013

REACTIONS (2)
  - Bedridden [Not Recovered/Not Resolved]
  - Cystitis [Not Recovered/Not Resolved]
